FAERS Safety Report 20501368 (Version 1)
Quarter: 2022Q1

REPORT INFORMATION
  Report Type: Spontaneous
  Country: US (occurrence: None)
  Receive Date: 20220218
  Receipt Date: 20220218
  Transmission Date: 20220423
  Serious: No
  Sender: FDA-Public Use
  Company Number: None

PATIENT
  Age: 42 Year
  Sex: Female
  Weight: 50.4 kg

DRUGS (1)
  1. RELIEVEIT GEL [Suspect]
     Active Substance: ARNICA MONTANA\HERBALS\HOMEOPATHICS
     Indication: Myalgia
     Dosage: FREQUENCY : 3 TIMES A DAY;?
     Route: 061
     Dates: start: 20220202, end: 20220208

REACTIONS (2)
  - Application site dermatitis [None]
  - Rash [None]

NARRATIVE: CASE EVENT DATE: 20220210
